FAERS Safety Report 14199540 (Version 4)
Quarter: 2017Q4

REPORT INFORMATION
  Report Type: Spontaneous
  Country: JP (occurrence: JP)
  Receive Date: 20171117
  Receipt Date: 20171220
  Transmission Date: 20180321
  Serious: Yes (Hospitalization, Other)
  Sender: FDA-Public Use
  Company Number: JP-GLAXOSMITHKLINE-JP2017JPN174288

PATIENT
  Age: 18 Year
  Sex: Female
  Weight: 50 kg

DRUGS (3)
  1. LAMICTAL [Suspect]
     Active Substance: LAMOTRIGINE
     Indication: JUVENILE MYOCLONIC EPILEPSY
     Dosage: 25 MG, QD
     Route: 048
     Dates: start: 20171011, end: 20171026
  2. DEPAKENE [Concomitant]
     Active Substance: VALPROIC ACID
     Indication: JUVENILE MYOCLONIC EPILEPSY
     Dosage: 200 MG, BID
  3. RIVOTRIL [Concomitant]
     Active Substance: CLONAZEPAM
     Indication: JUVENILE MYOCLONIC EPILEPSY
     Dosage: 0.75 MG, BID

REACTIONS (12)
  - Pancytopenia [Recovering/Resolving]
  - Papule [Recovering/Resolving]
  - Rhinorrhoea [Recovering/Resolving]
  - Mouth ulceration [Recovered/Resolved]
  - Cough [Recovering/Resolving]
  - Inappropriate schedule of drug administration [Unknown]
  - Pyrexia [Recovering/Resolving]
  - Generalised erythema [Recovering/Resolving]
  - Rash generalised [Recovering/Resolving]
  - Platelet count decreased [Recovering/Resolving]
  - Oropharyngeal pain [Recovering/Resolving]
  - Neutrophil count decreased [Recovering/Resolving]

NARRATIVE: CASE EVENT DATE: 20171011
